FAERS Safety Report 15150277 (Version 1)
Quarter: 2018Q3

REPORT INFORMATION
  Report Type: Spontaneous
  Country: DE (occurrence: DE)
  Receive Date: 20180716
  Receipt Date: 20180716
  Transmission Date: 20181010
  Serious: Yes (Other)
  Sender: FDA-Public Use
  Company Number: DE-US WORLDMEDS, LLC-STA_00017644

PATIENT
  Sex: Female
  Weight: 63 kg

DRUGS (9)
  1. MADOPAR LT [Concomitant]
     Active Substance: BENSERAZIDE HYDROCHLORIDE\LEVODOPA
     Indication: PARKINSON^S DISEASE
  2. ISICOM 250 [Concomitant]
     Indication: PARKINSON^S DISEASE
     Dosage: + 1 X 0.5 TABL.
  3. NACOM 100 RET. [Concomitant]
     Indication: PARKINSON^S DISEASE
  4. AZILECT [Concomitant]
     Active Substance: RASAGILINE MESYLATE
  5. PK MERZ 100 [Concomitant]
     Indication: PARKINSON^S DISEASE
  6. APOMORPHINE HYDROCHLORIDE [Suspect]
     Active Substance: APOMORPHINE HYDROCHLORIDE
     Indication: PARKINSON^S DISEASE
     Route: 058
     Dates: start: 201310
  7. VITAMIN B12 [Concomitant]
     Active Substance: CYANOCOBALAMIN
  8. MOTILIUM 10MG [Concomitant]
  9. VALDOXAN [Concomitant]
     Active Substance: AGOMELATINE

REACTIONS (3)
  - Injection site nodule [Not Recovered/Not Resolved]
  - Injection site haematoma [Recovered/Resolved]
  - Injection site necrosis [Recovered/Resolved]
